FAERS Safety Report 4280460-X (Version None)
Quarter: 2004Q1

REPORT INFORMATION
  Report Type: 
  Country: None (occurrence: None)
  Receive Date: 20040128
  Receipt Date: 20040128
  Transmission Date: 20041129
  Serious: Yes (Other)
  Sender: FDA-Public Use
  Company Number: None

PATIENT
  Sex: Male
  Weight: 15 kg

DRUGS (2)
  1. GAMMAGARD [Suspect]
     Indication: IMMUNODEFICIENCY
     Dosage: 7.5 GM Q 4 WKS
  2. GAMMAGARD [Suspect]

REACTIONS (1)
  - PHARMACEUTICAL PRODUCT COMPLAINT [None]
